FAERS Safety Report 10432117 (Version 3)
Quarter: 2014Q3

REPORT INFORMATION
  Report Type: Spontaneous
  Country: DE (occurrence: DE)
  Receive Date: 20140905
  Receipt Date: 20140919
  Transmission Date: 20150326
  Serious: Yes (Life-Threatening, Other)
  Sender: FDA-Public Use
  Company Number: DE-BRISTOL-MYERS SQUIBB COMPANY-21213830

PATIENT
  Age: 84 Year
  Sex: Female
  Weight: 63.4 kg

DRUGS (11)
  1. AMLODIPINE [Concomitant]
     Active Substance: AMLODIPINE BESYLATE
  2. ELIQUIS [Suspect]
     Active Substance: APIXABAN
     Indication: CEREBROVASCULAR ACCIDENT PROPHYLAXIS
     Dosage: TABS?DOSE WAS REDUCED BY HALF SINCE 18-JUL-2014.
     Dates: start: 20131126
  3. BISOHEXAL [Concomitant]
     Active Substance: BISOPROLOL FUMARATE
  4. VIGANTOLETTEN [Concomitant]
     Active Substance: CHOLECALCIFEROL
     Indication: VITAMIN D DEFICIENCY
  5. TIMOPTOL [Concomitant]
     Active Substance: TIMOLOL
     Indication: GLAUCOMA
  6. ATACAND PLUS [Concomitant]
     Active Substance: CANDESARTAN CILEXETIL\HYDROCHLOROTHIAZIDE
  7. ESIDRIX [Concomitant]
     Active Substance: HYDROCHLOROTHIAZIDE
  8. EUTHYROX [Concomitant]
     Active Substance: LEVOTHYROXINE SODIUM
  9. TAMBOCOR [Concomitant]
     Active Substance: FLECAINIDE ACETATE
  10. TIMOPTOL [Concomitant]
     Active Substance: TIMOLOL
     Indication: MACULE
  11. TIMOPTOL [Concomitant]
     Active Substance: TIMOLOL
     Indication: CATARACT

REACTIONS (6)
  - Venous haemorrhage [Unknown]
  - Petechiae [Unknown]
  - Haematoma [Not Recovered/Not Resolved]
  - Epistaxis [Unknown]
  - Contusion [Unknown]
  - Dermatitis [Unknown]

NARRATIVE: CASE EVENT DATE: 201311
